FAERS Safety Report 11769904 (Version 2)
Quarter: 2015Q4

REPORT INFORMATION
  Report Type: Spontaneous
  Country: US (occurrence: US)
  Receive Date: 20151123
  Receipt Date: 20151204
  Transmission Date: 20160304
  Serious: Yes (Other)
  Sender: FDA-Public Use
  Company Number: US-LPDUSPRD-20150931

PATIENT
  Age: 88 Year
  Sex: Female

DRUGS (1)
  1. DEHYDRATED ALCOHOL [Suspect]
     Active Substance: ALCOHOL
     Dosage: 5 ML (96%)
     Route: 056

REACTIONS (3)
  - Fibrosis [Unknown]
  - Parophthalmia [Unknown]
  - Enophthalmos [Unknown]
